FAERS Safety Report 8600188-2 (Version None)
Quarter: 2012Q3

REPORT INFORMATION
  Report Type: 
  Country: None (occurrence: None)
  Receive Date: 20120817
  Receipt Date: 20120808
  Transmission Date: 20120928
  Serious: Yes (Hospitalization)
  Sender: FDA-Public Use
  Company Number: US-BIOGENIDEC-2012BI030308

PATIENT
  Age: 30 Year
  Sex: Male

DRUGS (1)
  1. AVONEX [Suspect]
     Indication: MULTIPLE SCLEROSIS
     Route: 030
     Dates: start: 20100421, end: 20120630

REACTIONS (6)
  - FATIGUE [None]
  - DIZZINESS [None]
  - BLINDNESS UNILATERAL [None]
  - MULTIPLE SCLEROSIS [None]
  - HEADACHE [None]
  - PAIN IN EXTREMITY [None]
